FAERS Safety Report 14709193 (Version 2)
Quarter: 2018Q2

REPORT INFORMATION
  Report Type: Report from Study
  Country: ES (occurrence: ES)
  Receive Date: 20180403
  Receipt Date: 20180425
  Transmission Date: 20180711
  Serious: Yes (Hospitalization, Other)
  Sender: FDA-Public Use
  Company Number: ES-ELI_LILLY_AND_COMPANY-ES201710012475

PATIENT
  Sex: Female
  Weight: 113 kg

DRUGS (32)
  1. INSULIN GLARGINE [Suspect]
     Active Substance: INSULIN GLARGINE
     Indication: TYPE 2 DIABETES MELLITUS
     Dosage: 46-50 IU, EACH MORNING
     Route: 058
     Dates: start: 2016
  2. LIRICA [Concomitant]
     Active Substance: PREGABALIN
     Dosage: 75 MG, DAILY
     Route: 065
  3. RUPAFIN [Concomitant]
     Active Substance: RUPATADINE FUMARATE
     Indication: PRURITUS GENERALISED
  4. VALSARTAN. [Concomitant]
     Active Substance: VALSARTAN
     Indication: BLOOD PRESSURE ABNORMAL
     Dosage: 160 MG, EACH MORNING
     Route: 065
     Dates: start: 2014
  5. HEMOVAS [Concomitant]
     Indication: PERIPHERAL VASCULAR DISORDER
     Dosage: UNK
     Dates: start: 2014
  6. AMLODIPINE [Concomitant]
     Active Substance: AMLODIPINE BESYLATE
     Indication: BLOOD PRESSURE ABNORMAL
     Dosage: UNK, EACH EVENING
     Route: 065
     Dates: start: 2016
  7. LORAZEPAM. [Concomitant]
     Active Substance: LORAZEPAM
     Indication: SOMNOLENCE
  8. INSULIN GLARGINE [Suspect]
     Active Substance: INSULIN GLARGINE
     Dosage: 20-30 IU, DAILY
     Route: 058
     Dates: start: 2016
  9. HUMALOG [Suspect]
     Active Substance: INSULIN LISPRO
     Indication: TYPE 2 DIABETES MELLITUS
     Dosage: 30 IU, EACH EVENING
     Route: 058
     Dates: start: 2011
  10. DEFLAZACORT [Concomitant]
     Active Substance: DEFLAZACORT
     Dosage: .25 DF, QOD
     Route: 065
  11. RUPAFIN [Concomitant]
     Active Substance: RUPATADINE FUMARATE
     Indication: PRURITUS
     Dosage: 10 MG, DAILY
     Route: 065
     Dates: start: 2015
  12. LORAZEPAM. [Concomitant]
     Active Substance: LORAZEPAM
     Indication: SLEEP DISORDER
     Dosage: 1 MG, DAILY
     Route: 065
     Dates: start: 2015
  13. MORPHINE [Concomitant]
     Active Substance: MORPHINE
     Indication: PAIN
     Dosage: 50 MG, EVERY 72H
     Route: 062
     Dates: start: 201709
  14. HEMOVAS [Concomitant]
     Indication: POOR PERIPHERAL CIRCULATION
  15. LIRICA [Concomitant]
     Active Substance: PREGABALIN
     Indication: PAIN
     Dosage: 150 MG, DAILY
     Route: 065
     Dates: start: 2014
  16. BYDUREON [Concomitant]
     Active Substance: EXENATIDE
     Indication: TYPE 2 DIABETES MELLITUS
  17. ARAVA [Concomitant]
     Active Substance: LEFLUNOMIDE
     Indication: PAIN
     Dosage: 20 MG, QOD
     Route: 065
     Dates: start: 2010
  18. DELTIUS [Concomitant]
     Active Substance: CHOLECALCIFEROL
     Indication: PRODUCT USED FOR UNKNOWN INDICATION
     Dosage: 2.5 ML, EACH MORNING
     Route: 065
     Dates: start: 201707
  19. DELTIUS [Concomitant]
     Active Substance: CHOLECALCIFEROL
     Dosage: 2.5 ML, DAILY
     Route: 065
     Dates: start: 201706
  20. AMLODIPINE [Concomitant]
     Active Substance: AMLODIPINE BESYLATE
     Indication: BLOOD PRESSURE MEASUREMENT
     Dosage: UNK, DAILY
     Route: 065
     Dates: start: 2016
  21. INEGY [Concomitant]
     Active Substance: EZETIMIBE\SIMVASTATIN
     Indication: BLOOD CHOLESTEROL ABNORMAL
     Dosage: 10 MG, DAILY
     Route: 065
     Dates: start: 2014
  22. INSULIN GLARGINE [Suspect]
     Active Substance: INSULIN GLARGINE
     Dosage: 46 IU, EACH MORNING
     Route: 058
     Dates: start: 2016
  23. HUMALOG [Suspect]
     Active Substance: INSULIN LISPRO
     Dosage: 48 IU, 1 MORNING + 1 NIGHT
     Route: 058
  24. HUMALOG [Suspect]
     Active Substance: INSULIN LISPRO
     Dosage: UNK, PRN
     Route: 058
  25. VALSARTAN. [Concomitant]
     Active Substance: VALSARTAN
     Indication: BLOOD PRESSURE MEASUREMENT
  26. HEMOVAS [Concomitant]
     Indication: CARDIOVASCULAR DISORDER
     Dosage: UNK, BID
     Route: 065
     Dates: start: 2014
  27. TRAJENTA [Suspect]
     Active Substance: LINAGLIPTIN
     Indication: TYPE 2 DIABETES MELLITUS
     Dosage: 5 MG, EACH MORNING
     Route: 065
     Dates: start: 2014
  28. BYDUREON [Concomitant]
     Active Substance: EXENATIDE
     Indication: TYPE 2 DIABETES MELLITUS
     Dosage: 20 MG, WEEKLY (1/W)
     Route: 065
     Dates: start: 201708
  29. FUROSEMIDE. [Concomitant]
     Active Substance: FUROSEMIDE
     Indication: POLYURIA
     Dosage: 40 MG, DAILY
     Route: 065
     Dates: start: 2014
  30. DEFLAZACORT [Concomitant]
     Active Substance: DEFLAZACORT
     Indication: PAIN
     Dosage: 30 MG, OTHER
     Route: 065
  31. ASPIRIN                            /00002701/ [Concomitant]
     Active Substance: ASPIRIN
     Indication: PRODUCT USED FOR UNKNOWN INDICATION
     Dosage: 100 MG, EACH EVENING
     Route: 065
     Dates: start: 2013
  32. AMOXICILLIN. [Concomitant]
     Active Substance: AMOXICILLIN
     Indication: DIZZINESS
     Dosage: 8 MG, DAILY
     Route: 065
     Dates: start: 201704

REACTIONS (11)
  - Swelling [Not Recovered/Not Resolved]
  - Urine output decreased [Not Recovered/Not Resolved]
  - Road traffic accident [Not Recovered/Not Resolved]
  - Skin ulcer [Not Recovered/Not Resolved]
  - Pruritus generalised [Not Recovered/Not Resolved]
  - Paraesthesia [Not Recovered/Not Resolved]
  - Sciatica [Not Recovered/Not Resolved]
  - Renal disorder [Unknown]
  - Hypokinesia [Not Recovered/Not Resolved]
  - Paresis [Not Recovered/Not Resolved]
  - Blood glucose decreased [Not Recovered/Not Resolved]

NARRATIVE: CASE EVENT DATE: 2015
